FAERS Safety Report 7587829-6 (Version None)
Quarter: 2011Q3

REPORT INFORMATION
  Report Type: 
  Country: None (occurrence: None)
  Receive Date: 20110705
  Receipt Date: 20110623
  Transmission Date: 20111222
  Serious: No
  Sender: FDA-Public Use
  Company Number: US-BIOGENIDEC-2011BI023282

PATIENT
  Sex: Female

DRUGS (1)
  1. TYSABRI [Suspect]
     Indication: MULTIPLE SCLEROSIS
     Route: 042
     Dates: start: 20100521

REACTIONS (8)
  - GAIT DISTURBANCE [None]
  - ARTHRALGIA [None]
  - FATIGUE [None]
  - MUSCULAR WEAKNESS [None]
  - BACK PAIN [None]
  - MENTAL IMPAIRMENT [None]
  - DRUG INEFFECTIVE [None]
  - PERONEAL NERVE PALSY [None]
